FAERS Safety Report 9433787 (Version 2)
Quarter: 2013Q4

REPORT INFORMATION
  Report Type: Report from Study
  Country: DE (occurrence: DE)
  Receive Date: 20130731
  Receipt Date: 20131106
  Transmission Date: 20140711
  Serious: No
  Sender: FDA-Public Use
  Company Number: PHHY2013DE080021

PATIENT
  Sex: Female

DRUGS (10)
  1. STI571 [Suspect]
     Indication: CHRONIC MYELOID LEUKAEMIA
     Dosage: ? 400 MG, DAILY
     Route: 048
     Dates: start: 20120615, end: 20120831
  2. AMN107 [Suspect]
     Dosage: UNK
     Dates: start: 20120905
  3. METOHEXAL [Concomitant]
     Dosage: 150 MG, QD
  4. AMLODIPINE [Concomitant]
     Dosage: 10 MG, QD
  5. METFORMIN [Concomitant]
     Dosage: 500 MG, BID
  6. SIMVASTATIN [Concomitant]
  7. ASS [Concomitant]
     Dosage: 100 MG, QD
  8. PANTOZOL [Concomitant]
     Dosage: 20 MG, QD
  9. VIGANTOLETTEN [Concomitant]
  10. IDEOS [Concomitant]
     Dosage: 2 TIMES A DAY

REACTIONS (5)
  - Drug intolerance [Recovered/Resolved]
  - Oedema [Recovered/Resolved]
  - Vomiting [Recovered/Resolved]
  - Diarrhoea [Recovered/Resolved]
  - Decreased appetite [Recovered/Resolved]
